FAERS Safety Report 18740914 (Version 2)
Quarter: 2021Q1

REPORT INFORMATION
  Report Type: Report from Study
  Country: None (occurrence: US)
  Receive Date: 20210114
  Receipt Date: 20210302
  Transmission Date: 20210419
  Serious: Yes (Other)
  Sender: FDA-Public Use
  Company Number: US-ABBVIE-20K-163-3653158-00

PATIENT
  Sex: Female
  Weight: 63.56 kg

DRUGS (15)
  1. HUMIRA [Suspect]
     Active Substance: ADALIMUMAB
     Route: 058
     Dates: start: 202012
  2. HUMIRA [Suspect]
     Active Substance: ADALIMUMAB
     Indication: CROHN^S DISEASE
     Route: 058
     Dates: end: 201712
  3. SOTALOL. [Concomitant]
     Active Substance: SOTALOL
     Indication: TACHYCARDIA
  4. MONTELUKAST [Concomitant]
     Active Substance: MONTELUKAST SODIUM
     Indication: ASTHMA
  5. DIPHENOXYLATE [Concomitant]
     Active Substance: DIPHENOXYLATE
     Indication: DIARRHOEA
  6. ALLER TEC [Concomitant]
     Active Substance: CETIRIZINE HYDROCHLORIDE
     Indication: HYPERSENSITIVITY
  7. IMURAN [Suspect]
     Active Substance: AZATHIOPRINE
     Indication: PRODUCT USED FOR UNKNOWN INDICATION
     Route: 048
  8. GABAPENTIN. [Concomitant]
     Active Substance: GABAPENTIN
     Indication: NEUROPATHY PERIPHERAL
  9. ZOFRAN [Concomitant]
     Active Substance: ONDANSETRON HYDROCHLORIDE
     Indication: NAUSEA
  10. VITAMIN D [Concomitant]
     Active Substance: VITAMIN D NOS
     Indication: OSTEOPOROSIS
  11. MONTELUKAST [Concomitant]
     Active Substance: MONTELUKAST SODIUM
     Indication: HYPERSENSITIVITY
  12. HUMIRA [Suspect]
     Active Substance: ADALIMUMAB
     Indication: CROHN^S DISEASE
     Route: 058
     Dates: start: 2008, end: 2018
  13. ALERFEX [Concomitant]
     Indication: HYPERSENSITIVITY
  14. CLONAZEPAM. [Concomitant]
     Active Substance: CLONAZEPAM
     Indication: TIC
  15. SOTALOL. [Concomitant]
     Active Substance: SOTALOL
     Indication: SINUS NODE DYSFUNCTION

REACTIONS (14)
  - Colectomy [Unknown]
  - Eyelid pain [Recovering/Resolving]
  - Therapeutic product effect decreased [Recovered/Resolved]
  - Eyelid ptosis [Recovering/Resolving]
  - Visual impairment [Recovering/Resolving]
  - Gastrointestinal motility disorder [Recovered/Resolved]
  - Cataract [Recovered/Resolved]
  - Malaise [Unknown]
  - Therapeutic product effect decreased [Recovered/Resolved]
  - Crohn^s disease [Recovered/Resolved]
  - Injection site pain [Recovered/Resolved]
  - Crohn^s disease [Unknown]
  - Drug specific antibody present [Unknown]
  - Skin laxity [Recovering/Resolving]

NARRATIVE: CASE EVENT DATE: 2008
